FAERS Safety Report 7009806-6 (Version None)
Quarter: 2010Q3

REPORT INFORMATION
  Report Type: 
  Country: None (occurrence: None)
  Receive Date: 20100923
  Receipt Date: 20100805
  Transmission Date: 20110219
  Serious: Yes (Hospitalization)
  Sender: FDA-Public Use
  Company Number: JP-ROCHE-720368

PATIENT
  Age: 70 Year
  Sex: Male

DRUGS (6)
  1. AVASTIN [Suspect]
     Indication: LARGE INTESTINE CARCINOMA
     Dosage: DOSAGE IS UNCERTAIN
     Route: 041
     Dates: end: 20100712
  2. ELPLAT [Concomitant]
     Dosage: DOSAGE IS UNCERTAIN
     Route: 041
     Dates: end: 20100712
  3. LEUCOVORIN CALCIUM [Concomitant]
     Dosage: DOSAGE IS UNCERTAIN, DRUG REPORTED AS LEVOFOLINATE CALCIUM
     Route: 041
  4. FLUOROURACIL [Concomitant]
     Dosage: DOSAGE IS UNCERTAIN
     Route: 040
  5. FLUOROURACIL [Concomitant]
     Route: 040
  6. FLUOROURACIL [Concomitant]
     Route: 040

REACTIONS (1)
  - ATRIOVENTRICULAR BLOCK COMPLETE [None]
